FAERS Safety Report 16263535 (Version 2)
Quarter: 2020Q2

REPORT INFORMATION
  Report Type: Report from Study
  Country: DE (occurrence: DE)
  Receive Date: 20190502
  Receipt Date: 20200526
  Transmission Date: 20200713
  Serious: No
  Sender: FDA-Public Use
  Company Number: DE-ROCHE-2311418

PATIENT
  Age: 62 Year
  Sex: Female
  Weight: 71 kg

DRUGS (9)
  1. TAVEGIL [CLEMASTINE] [Concomitant]
     Active Substance: CLEMASTINE
     Indication: PROPHYLAXIS
     Dosage: PROPHYLAXIS TO PREVENT INFUSION-RELATED REACTIONS
     Route: 042
     Dates: start: 20180709, end: 20180723
  2. METHYLPREDNISOLON [METHYLPREDNISOLONE] [Concomitant]
     Active Substance: METHYLPREDNISOLONE
     Indication: PROPHYLAXIS
     Dosage: PROPHYLAXIS TO PREVENT INFUSION-RELATED REACTIONS
     Route: 042
     Dates: start: 20190218
  3. METHYLPREDNISOLON [METHYLPREDNISOLONE] [Concomitant]
     Active Substance: METHYLPREDNISOLONE
     Route: 041
     Dates: start: 20180709, end: 20180723
  4. PREGABIN [Concomitant]
     Indication: SCIATICA
     Route: 048
     Dates: start: 20180101
  5. PRAMIPEXOL [PRAMIPEXOLE DIHYDROCHLORIDE] [Concomitant]
     Indication: RESTLESS LEGS SYNDROME
     Dosage: 21-JUL-2017
     Route: 048
  6. PARACETAMOL [Concomitant]
     Active Substance: ACETAMINOPHEN
     Indication: PROPHYLAXIS
     Dosage: PROPHYLAXIS TO PREVENT INFUSION-RELATED REACTIONS
     Route: 042
     Dates: start: 20180709, end: 20180723
  7. TAVEGIL [CLEMASTINE] [Concomitant]
     Active Substance: CLEMASTINE
     Route: 042
     Dates: start: 20190218
  8. OCRELIZUMAB. [Suspect]
     Active Substance: OCRELIZUMAB
     Indication: MULTIPLE SCLEROSIS
     Route: 042
     Dates: start: 20180709, end: 20180723
  9. PARACETAMOL [Concomitant]
     Active Substance: ACETAMINOPHEN
     Route: 042
     Dates: start: 20190218

REACTIONS (1)
  - Nasopharyngitis [Recovered/Resolved]

NARRATIVE: CASE EVENT DATE: 20190118
